FAERS Safety Report 8106411-5 (Version None)
Quarter: 2012Q1

REPORT INFORMATION
  Report Type: 
  Country: None (occurrence: None)
  Receive Date: 20120202
  Receipt Date: 20120125
  Transmission Date: 20120608
  Serious: Yes (Hospitalization)
  Sender: FDA-Public Use
  Company Number: US-US-EMD SERONO, INC.-7107010

PATIENT
  Sex: Female

DRUGS (9)
  1. NASONEX [Concomitant]
  2. CELEBREX [Concomitant]
  3. FOSAMAX [Concomitant]
  4. CYMBALTA [Concomitant]
  5. REBIF [Suspect]
     Indication: MULTIPLE SCLEROSIS
     Dates: start: 20110201, end: 20111101
  6. RITALIN [Concomitant]
  7. NEURONTIN [Concomitant]
  8. REBIF [Suspect]
     Dates: start: 20120120
  9. SINGULAIR [Concomitant]

REACTIONS (5)
  - PAIN [None]
  - LIVER FUNCTION TEST ABNORMAL [None]
  - ANAESTHETIC COMPLICATION [None]
  - DIARRHOEA HAEMORRHAGIC [None]
  - HYPOTENSION [None]
